FAERS Safety Report 13094724 (Version 2)
Quarter: 2017Q1

REPORT INFORMATION
  Report Type: Report from Study
  Country: CA (occurrence: CA)
  Receive Date: 20170106
  Receipt Date: 20170223
  Transmission Date: 20170428
  Serious: Yes (Hospitalization)
  Sender: FDA-Public Use
  Company Number: CA-JNJFOC-20161220238

PATIENT
  Age: 77 Year
  Sex: Male

DRUGS (1)
  1. DARZALEX [Suspect]
     Active Substance: DARATUMUMAB
     Indication: PLASMA CELL MYELOMA
     Route: 042
     Dates: start: 20161207

REACTIONS (4)
  - Sepsis [Recovered/Resolved]
  - Frequent bowel movements [Unknown]
  - Muscle spasms [Recovered/Resolved]
  - Increased appetite [Unknown]

NARRATIVE: CASE EVENT DATE: 20161221
